FAERS Safety Report 14469282 (Version 5)
Quarter: 2023Q4

REPORT INFORMATION
  Report Type: Other
  Country: JP (occurrence: JP)
  Receive Date: 20180131
  Receipt Date: 20231006
  Transmission Date: 20240110
  Serious: Yes (Death, Hospitalization, Other)
  Sender: FDA-Public Use
  Company Number: JP-CHUGAI-A2018002467ROCHE

PATIENT
  Age: 33 Year
  Sex: Male
  Weight: 90 kg

DRUGS (31)
  1. TOCILIZUMAB [Suspect]
     Active Substance: TOCILIZUMAB
     Indication: Cytokine release syndrome
     Dosage: THERAPY START DATE: 13/JAN/2018. INJECTION
     Route: 065
     Dates: start: 20180113, end: 20180113
  2. TOCILIZUMAB [Suspect]
     Active Substance: TOCILIZUMAB
     Route: 065
     Dates: start: 20180116, end: 20180116
  3. TISAGENLECLEUCEL [Suspect]
     Active Substance: TISAGENLECLEUCEL
     Indication: Diffuse large B-cell lymphoma
     Dosage: DOSAGE IS UNCERTAIN.
     Route: 065
     Dates: start: 20180105, end: 20180105
  4. SULFAMETHOXAZOLE\TRIMETHOPRIM [Concomitant]
     Active Substance: SULFAMETHOXAZOLE\TRIMETHOPRIM
     Indication: Prophylaxis
     Route: 048
     Dates: start: 20170725
  5. FEBUXOSTAT [Concomitant]
     Active Substance: FEBUXOSTAT
     Indication: Prophylaxis
     Route: 048
     Dates: start: 20171221
  6. MAGNESIUM OXIDE [Concomitant]
     Active Substance: MAGNESIUM OXIDE
     Indication: Constipation
     Dosage: TAKEN AS NEEDED
     Route: 048
  7. IBUPROFEN [Concomitant]
     Active Substance: IBUPROFEN
     Indication: Pyrexia
     Route: 048
     Dates: start: 20180106
  8. LOCOID [Concomitant]
     Active Substance: HYDROCORTISONE BUTYRATE
     Indication: Rash
     Dosage: PROPER PROPER QUANTITY
     Route: 003
     Dates: start: 20171204
  9. BISOPROLOL [Concomitant]
     Active Substance: BISOPROLOL\BISOPROLOL FUMARATE
     Indication: Hypertension
     Route: 062
     Dates: start: 20180112
  10. GABEXATE MESYLATE [Concomitant]
     Active Substance: GABEXATE MESYLATE
     Indication: Pancreatic enzymes increased
     Route: 042
     Dates: start: 20180101, end: 20180202
  11. PREDONINE [Concomitant]
     Active Substance: PREDNISOLONE
     Indication: Adrenal insufficiency
     Route: 042
     Dates: start: 20180103, end: 20180116
  12. ACETAMINOPHEN [Concomitant]
     Active Substance: ACETAMINOPHEN
     Indication: Prophylaxis
     Dosage: TAKEN AS NEEDED
     Route: 042
     Dates: start: 20171220, end: 20180130
  13. ACETAMINOPHEN [Concomitant]
     Active Substance: ACETAMINOPHEN
     Indication: Pyrexia
  14. POLARAMINE [Concomitant]
     Active Substance: DEXCHLORPHENIRAMINE MALEATE
     Indication: Prophylaxis
     Dosage: TAKEN AS NEEDED
     Route: 042
     Dates: start: 20180105
  15. LANSOPRAZOLE [Concomitant]
     Active Substance: LANSOPRAZOLE
     Indication: Gastritis
     Route: 042
     Dates: start: 20171221, end: 20180207
  16. CANCIDAS [Concomitant]
     Active Substance: CASPOFUNGIN ACETATE
     Indication: Infection prophylaxis
     Route: 042
     Dates: start: 20171222, end: 20180130
  17. LASIX [Concomitant]
     Active Substance: FUROSEMIDE
     Indication: Oedema
     Dosage: TAKEN AS NEEDED
     Route: 042
     Dates: start: 20180101
  18. LASIX [Concomitant]
     Active Substance: FUROSEMIDE
     Dosage: PROPERLY ADJUSTING FLOW RATE (1/13-0.6ML(6MG)/)?DOSE INTERVAL UNCERTAINTY.
     Route: 042
     Dates: start: 20180113
  19. ACYCLOVIR [Concomitant]
     Active Substance: ACYCLOVIR
     Indication: Infection prophylaxis
     Dosage: REPORTED AS ACTIOS
     Route: 042
     Dates: start: 20171226, end: 20180116
  20. ULINASTATIN [Concomitant]
     Active Substance: ULINASTATIN
     Indication: Pancreatic enzymes increased
     Route: 042
     Dates: start: 20171229, end: 20180130
  21. LEVETIRACETAM [Concomitant]
     Active Substance: LEVETIRACETAM
     Indication: Seizure prophylaxis
     Route: 042
     Dates: start: 20180104, end: 20180116
  22. PRIMPERAN [Concomitant]
     Active Substance: METOCLOPRAMIDE HYDROCHLORIDE
     Indication: Nausea
     Dosage: TAKEN AS NEEDED
     Route: 042
     Dates: start: 20171231
  23. PRIMPERAN [Concomitant]
     Active Substance: METOCLOPRAMIDE HYDROCHLORIDE
     Indication: Vomiting
  24. FENTANYL [Concomitant]
     Active Substance: FENTANYL
     Indication: Pain
     Dosage: PROPERLY ADJUSTING FLOW RATE (1/13-2.1ML/)?DOSE INTERVAL UNCERTAINTY.
     Route: 042
  25. THROMBOMODULIN ALFA [Concomitant]
     Active Substance: THROMBOMODULIN ALFA
     Indication: Disseminated intravascular coagulation
     Route: 042
     Dates: start: 20180106, end: 20180116
  26. MEROPENEM [Concomitant]
     Active Substance: MEROPENEM
     Indication: Infection prophylaxis
     Route: 042
     Dates: start: 20180105
  27. SODIUM CHLORIDE [Concomitant]
     Active Substance: SODIUM CHLORIDE
     Indication: Electrolyte substitution therapy
     Route: 042
     Dates: start: 20180112, end: 20180116
  28. METRONIDAZOLE [Concomitant]
     Active Substance: METRONIDAZOLE
     Indication: Enteritis infectious
     Route: 042
     Dates: start: 20180113, end: 20180116
  29. VANCOMYCIN [Concomitant]
     Active Substance: VANCOMYCIN
     Indication: Infection prophylaxis
     Route: 042
     Dates: start: 20180113, end: 20180208
  30. AMBISOME [Concomitant]
     Active Substance: AMPHOTERICIN B
     Indication: Infection prophylaxis
     Route: 042
     Dates: start: 20180122
  31. DEXAMETHASONE SODIUM PHOSPHATE [Concomitant]
     Active Substance: DEXAMETHASONE SODIUM PHOSPHATE
     Indication: Diffuse large B-cell lymphoma
     Route: 042
     Dates: start: 20180215, end: 20180217

REACTIONS (14)
  - Tumour lysis syndrome [Recovered/Resolved]
  - Haemophagocytic lymphohistiocytosis [Recovered/Resolved]
  - Disseminated intravascular coagulation [Recovered/Resolved]
  - Cytokine release syndrome [Recovered/Resolved]
  - Hepatic function abnormal [Not Recovered/Not Resolved]
  - Neutrophil count increased [Unknown]
  - Fungal infection [Not Recovered/Not Resolved]
  - Disease progression [Fatal]
  - Anaemia [Fatal]
  - Intra-abdominal haemorrhage [Fatal]
  - Shock haemorrhagic [Fatal]
  - Off label use [Unknown]
  - Diarrhoea [Recovered/Resolved]
  - Bacterial infection [Recovered/Resolved]

NARRATIVE: CASE EVENT DATE: 20180112
